FAERS Safety Report 8770642 (Version 1)
Quarter: 2012Q4

REPORT INFORMATION
  Report Type: 
  Country: TR (occurrence: TR)
  Receive Date: 20120907
  Receipt Date: 20120907
  Transmission Date: 20130627
  Serious: Yes (Hospitalization, Other)
  Sender: FDA-Public Use
  Company Number: TR-TEVA-357287ISR

PATIENT
  Age: 68 Year
  Sex: Female

DRUGS (2)
  1. CISPLATIN [Suspect]
     Indication: NON-SMALL CELL LUNG CANCER METASTATIC
     Dosage: 3.5714 mg/m2 Daily; 28 day cycle
     Route: 042
  2. GEMZAR [Suspect]
     Indication: NON-SMALL CELL LUNG CANCER METASTATIC
     Dosage: on days 1, 8 + 15 (28 day cycle)
     Route: 042

REACTIONS (1)
  - Pancreatitis acute [Recovered/Resolved]
